FAERS Safety Report 7100039-1 (Version None)
Quarter: 2010Q4

REPORT INFORMATION
  Report Type: 
  Country: None (occurrence: None)
  Receive Date: 20101112
  Receipt Date: 20101104
  Transmission Date: 20110411
  Serious: Yes (Death)
  Sender: FDA-Public Use
  Company Number: US-PURDUE-USA-2010-0047390

PATIENT
  Age: 62 Year
  Sex: Female
  Weight: 120.18 kg

DRUGS (2)
  1. MORPHINE SULFATE [Suspect]
     Indication: BACK PAIN
     Dosage: 60 MG, UNK
     Dates: start: 20100804
  2. MORPHINE SULFATE [Suspect]
     Indication: OSTEOARTHRITIS
     Dosage: 15 MG, UNK

REACTIONS (2)
  - CORONARY ARTERY DISEASE [None]
  - OBESITY [None]
